FAERS Safety Report 15508001 (Version 1)
Quarter: 2018Q4

REPORT INFORMATION
  Report Type: Report from Study
  Country: GB (occurrence: GB)
  Receive Date: 20181016
  Receipt Date: 20181016
  Transmission Date: 20190205
  Serious: Yes (Death)
  Sender: FDA-Public Use
  Company Number: GB-CELGENEUS-GBR-20181002318

PATIENT

DRUGS (2)
  1. CC-10004 [Suspect]
     Active Substance: APREMILAST
     Route: 065
  2. CC-10004 [Suspect]
     Active Substance: APREMILAST
     Indication: PSORIASIS
     Route: 048
     Dates: end: 20170613

REACTIONS (1)
  - Pancreatic carcinoma [Fatal]
